FAERS Safety Report 4321968-8 (Version None)
Quarter: 2004Q1

REPORT INFORMATION
  Report Type: 
  Country: None (occurrence: None)
  Receive Date: 20040319
  Receipt Date: 20040104
  Transmission Date: 20041129
  Serious: No
  Sender: FDA-Public Use
  Company Number: 200400151

PATIENT
  Age: 63 Year
  Sex: Female
  Weight: 51.2565 kg

DRUGS (1)
  1. LUMIGAN [Suspect]
     Indication: GLAUCOMA
     Dosage: 2 DROP QHS EYE
     Route: 047
     Dates: start: 20030110, end: 20030402

REACTIONS (4)
  - EYE REDNESS [None]
  - PHOTOPHOBIA [None]
  - SKIN HYPERPIGMENTATION [None]
  - SOMNOLENCE [None]
